FAERS Safety Report 15647650 (Version 1)
Quarter: 2018Q4

REPORT INFORMATION
  Report Type: Spontaneous
  Country: FR (occurrence: FR)
  Receive Date: 20181122
  Receipt Date: 20181122
  Transmission Date: 20190205
  Serious: Yes (Hospitalization)
  Sender: FDA-Public Use
  Company Number: FR-GLAXOSMITHKLINE-FR2018211262

PATIENT
  Age: 62 Year
  Sex: Male

DRUGS (4)
  1. VENTOLINE [Suspect]
     Active Substance: ALBUTEROL
     Indication: RESPIRATORY FAILURE
     Dosage: 100?G ON DEMAND
     Route: 045
  2. BRICANYL [Suspect]
     Active Substance: TERBUTALINE SULFATE
     Indication: RESPIRATORY FAILURE
     Dosage: 15 MG, UNK
     Route: 045
  3. INNOVAIR [Suspect]
     Active Substance: BECLOMETHASONE DIPROPIONATE\FORMOTEROL
     Indication: RESPIRATORY FAILURE
     Dosage: 4 DF, UNK
     Route: 045
  4. ATROVENT [Suspect]
     Active Substance: IPRATROPIUM BROMIDE
     Indication: RESPIRATORY FAILURE
     Dosage: 1.5 MG, UNK
     Route: 045

REACTIONS (1)
  - Blood creatine phosphokinase increased [Not Recovered/Not Resolved]

NARRATIVE: CASE EVENT DATE: 2008
